FAERS Safety Report 8301804-5 (Version None)
Quarter: 2012Q2

REPORT INFORMATION
  Report Type: 
  Country: None (occurrence: None)
  Receive Date: 20120417
  Receipt Date: 20120403
  Transmission Date: 20120825
  Serious: Yes (Other)
  Sender: FDA-Public Use
  Company Number: FK201201041

PATIENT
  Age: 50 Year
  Sex: Male

DRUGS (4)
  1. METHOTREXATE [Suspect]
     Indication: RHEUMATOID ARTHRITIS
     Dosage: 10 MG, 1 IN 1 WK
  2. PREDNISONE TAB [Concomitant]
  3. ETANERCEPT (ETANERCEPT) (ETANERCEPT) [Suspect]
     Indication: RHEUMATOID ARTHRITIS
     Dosage: 50 MG, 1 IN 1 WK
  4. ADALIMUMAB (ADALIMUMAB) [Suspect]
     Indication: RHEUMATOID ARTHRITIS

REACTIONS (4)
  - HILAR LYMPHADENOPATHY [None]
  - SARCOIDOSIS [None]
  - GRANULOMA [None]
  - LYMPHADENOPATHY MEDIASTINAL [None]
